FAERS Safety Report 8428804-9 (Version None)
Quarter: 2012Q2

REPORT INFORMATION
  Report Type: 
  Country: None (occurrence: None)
  Receive Date: 20120606
  Receipt Date: 20120524
  Transmission Date: 20120825
  Serious: Yes (Hospitalization)
  Sender: FDA-Public Use
  Company Number: 2012-00831

PATIENT
  Age: 56 Year
  Sex: Male
  Weight: 101.6 kg

DRUGS (7)
  1. PREDNISOLONE [Suspect]
     Indication: CHRONIC OBSTRUCTIVE PULMONARY DISEASE
     Dosage: UNKNOWN (30 MG, UNK), ORAL
     Route: 048
     Dates: start: 20120509, end: 20120511
  2. OMEPRAZOLE [Concomitant]
  3. ALBUTEROL [Concomitant]
  4. FOLIC ACID [Concomitant]
  5. SIMVASTATIN [Suspect]
     Indication: HYPERCHOLESTEROLAEMIA
     Dosage: UNKNOWN (40 MG, UNK), ORAL
     Route: 048
     Dates: start: 20120301, end: 20120511
  6. AMOXICILLIN [Concomitant]
  7. VITAMIN B SUBASTANCES (CYANOCOBALAMIN) [Concomitant]

REACTIONS (9)
  - WHITE BLOOD CELL COUNT INCREASED [None]
  - HYPERTENSION [None]
  - HYPERKALAEMIA [None]
  - RHABDOMYOLYSIS [None]
  - TACHYCARDIA [None]
  - HAEMODIALYSIS [None]
  - RENAL FAILURE ACUTE [None]
  - PAIN [None]
  - PLATELET COUNT DECREASED [None]
